FAERS Safety Report 15493521 (Version 1)
Quarter: 2018Q4

REPORT INFORMATION
  Report Type: Spontaneous
  Country: US (occurrence: US)
  Receive Date: 20181012
  Receipt Date: 20181012
  Transmission Date: 20190205
  Serious: No
  Sender: FDA-Public Use
  Company Number: US-ASTRAZENECA-2018SF18777

PATIENT
  Sex: Male

DRUGS (3)
  1. PREDNISONE. [Concomitant]
     Active Substance: PREDNISONE
     Dosage: UNKNOWN DOSE
     Route: 065
  2. FLUOXETINE [Concomitant]
     Active Substance: FLUOXETINE HYDROCHLORIDE
     Dosage: UNKNOWN DOSE
     Route: 065
  3. FASENRA [Suspect]
     Active Substance: BENRALIZUMAB
     Indication: ASTHMA
     Dosage: 30 MG, ONCE EVERY 4 WEEKS FOR THE FIRST 3 DOSES, 30 MG, ONCE EVERY 8 WEEKS, THEREAFTER
     Route: 058

REACTIONS (1)
  - Neuropathy peripheral [Unknown]
